FAERS Safety Report 5896082-0 (Version None)
Quarter: 2008Q3

REPORT INFORMATION
  Report Type: 
  Country: None (occurrence: None)
  Receive Date: 20080924
  Receipt Date: 20080917
  Transmission Date: 20090109
  Serious: Yes (Life-Threatening, Hospitalization, Disabling)
  Sender: FDA-Public Use
  Company Number: GB-B.I. PHARMACEUTICALS,INC./RIDGEFIELD-2008-UK-01572UK

PATIENT
  Age: 88 Year
  Sex: Female

DRUGS (6)
  1. DIPYRIDAMOLE [Suspect]
     Indication: CEREBROVASCULAR ACCIDENT
     Dosage: 600MG
     Route: 048
  2. DIPYRIDAMOLE [Suspect]
     Indication: THROMBOCYTHAEMIA
  3. ASPIRIN [Suspect]
     Indication: CEREBROVASCULAR ACCIDENT
     Dosage: 150MG
     Route: 048
  4. ASPIRIN [Suspect]
     Indication: THROMBOCYTHAEMIA
  5. BENDROFLUAZIDE [Suspect]
     Indication: HYPERTENSION
     Dosage: 5MG
     Route: 048
  6. AMLODIPINE [Concomitant]
     Dosage: 5MG
     Route: 048

REACTIONS (2)
  - FALL [None]
  - SUBDURAL HAEMATOMA [None]
